FAERS Safety Report 7088382-6 (Version None)
Quarter: 2010Q4

REPORT INFORMATION
  Report Type: 
  Country: None (occurrence: None)
  Receive Date: 20101108
  Receipt Date: 20101102
  Transmission Date: 20110411
  Serious: Yes (Other)
  Sender: FDA-Public Use
  Company Number: US-SANOFI-AVENTIS-2010SA063698

PATIENT
  Age: 71 Year
  Sex: Male
  Weight: 73 kg

DRUGS (7)
  1. JEVTANA KIT [Suspect]
     Indication: PROSTATE CANCER METASTATIC
     Route: 041
     Dates: start: 20100907, end: 20100907
  2. JEVTANA KIT [Suspect]
     Route: 041
     Dates: start: 20100928, end: 20100928
  3. ZOCOR [Concomitant]
     Route: 065
     Dates: end: 20101015
  4. RESTORIL [Concomitant]
     Indication: INSOMNIA
     Route: 065
  5. PAXIL [Concomitant]
     Indication: DEPRESSION
     Route: 065
  6. VALIUM [Concomitant]
     Indication: ANXIETY
     Route: 065
  7. TYLENOL [Concomitant]
     Dosage: AS NEEDED
     Route: 065

REACTIONS (7)
  - ABDOMINAL PAIN [None]
  - APHAGIA [None]
  - CONSTIPATION [None]
  - DIARRHOEA [None]
  - ILEUS [None]
  - NAUSEA [None]
  - VOMITING [None]
